FAERS Safety Report 8556528-6 (Version None)
Quarter: 2012Q3

REPORT INFORMATION
  Report Type: 
  Country: None (occurrence: None)
  Receive Date: 20120801
  Receipt Date: 20120723
  Transmission Date: 20120928
  Serious: Yes (Hospitalization)
  Sender: FDA-Public Use
  Company Number: US-BAYER-2011-083601

PATIENT
  Age: 18 Year
  Sex: Female
  Weight: 58.957 kg

DRUGS (5)
  1. YAZ [Suspect]
     Dosage: UNK
     Dates: start: 20090101, end: 20100101
  2. YASMIN [Suspect]
     Dosage: UNK
     Dates: start: 20090101, end: 20100101
  3. DROSPIRENONE AND ETHINYL ESTRADIOL [Suspect]
     Dosage: UNK
     Dates: start: 20090101, end: 20100101
  4. IBUPROFEN [Concomitant]
  5. LO/OVRAL-28 [Concomitant]

REACTIONS (8)
  - CHEST PAIN [None]
  - PULMONARY EMBOLISM [None]
  - ANXIETY [None]
  - DYSPNOEA [None]
  - FEAR OF DEATH [None]
  - PAIN [None]
  - ANHEDONIA [None]
  - INJURY [None]
